FAERS Safety Report 23378877 (Version 1)
Quarter: 2024Q1

REPORT INFORMATION
  Report Type: Report from Study
  Country: US (occurrence: US)
  Receive Date: 20240108
  Receipt Date: 20240108
  Transmission Date: 20240410
  Serious: Yes (Hospitalization, Other)
  Sender: FDA-Public Use
  Company Number: US-PFIZER INC-PV202400000325

PATIENT
  Age: 85 Year
  Sex: Female

DRUGS (3)
  1. PAXLOVID [Suspect]
     Active Substance: NIRMATRELVIR\RITONAVIR
     Indication: COVID-19 treatment
     Dosage: UNK
     Dates: start: 20230922
  2. DUPIXENT [Suspect]
     Active Substance: DUPILUMAB
     Indication: Asthma
     Dosage: 600 MG, 1X/DAY
     Route: 058
     Dates: start: 20230801
  3. DUPIXENT [Suspect]
     Active Substance: DUPILUMAB
     Dosage: 300 MG, WEEKLY
     Route: 058
     Dates: start: 202308

REACTIONS (9)
  - Pancreatitis [Unknown]
  - Balance disorder [Unknown]
  - Brain fog [Unknown]
  - Gait disturbance [Unknown]
  - Dizziness postural [Unknown]
  - Feeling abnormal [Recovered/Resolved]
  - COVID-19 [Recovering/Resolving]
  - Disease recurrence [Recovering/Resolving]
  - Sinus disorder [Unknown]

NARRATIVE: CASE EVENT DATE: 20230101
